FAERS Safety Report 12597651 (Version 2)
Quarter: 2016Q3

REPORT INFORMATION
  Report Type: Report from Study
  Country: CA (occurrence: CA)
  Receive Date: 20160726
  Receipt Date: 20160824
  Transmission Date: 20161109
  Serious: Yes (Hospitalization)
  Sender: FDA-Public Use
  Company Number: CA-HLSUS-2016-CA-000264

PATIENT
  Age: 74 Year
  Sex: Male

DRUGS (1)
  1. CLOZARIL [Suspect]
     Active Substance: CLOZAPINE
     Route: 048
     Dates: start: 20121210

REACTIONS (7)
  - Hyperhidrosis [Unknown]
  - Pneumonia [Unknown]
  - Bronchitis [Unknown]
  - Blood pressure decreased [Unknown]
  - Vomiting [Unknown]
  - Asthenia [Unknown]
  - Erythema [Unknown]

NARRATIVE: CASE EVENT DATE: 20160630
